FAERS Safety Report 4719773-3 (Version None)
Quarter: 2005Q3

REPORT INFORMATION
  Report Type: 
  Country: None (occurrence: None)
  Receive Date: 20050721
  Receipt Date: 20041025
  Transmission Date: 20060218
  Serious: No
  Sender: FDA-Public Use
  Company Number: US-GLAXOSMITHKLINE-A0531210A

PATIENT
  Age: 65 Year
  Sex: Male

DRUGS (7)
  1. AVANDIA [Suspect]
     Dosage: 4MG PER DAY
     Route: 048
  2. LANTUS [Concomitant]
  3. HUMULIN 70/30 [Concomitant]
  4. LIPITOR [Concomitant]
  5. PROCARDIA XL [Concomitant]
  6. VASOTEC RPD [Concomitant]
  7. PRAZOSIN HCL [Concomitant]

REACTIONS (3)
  - BURNING SENSATION [None]
  - GLYCOSYLATED HAEMOGLOBIN INCREASED [None]
  - HYPERGLYCAEMIA [None]
